FAERS Safety Report 8150169-0 (Version None)
Quarter: 2012Q1

REPORT INFORMATION
  Report Type: 
  Country: None (occurrence: None)
  Receive Date: 20120220
  Receipt Date: 20120219
  Transmission Date: 20120608
  Serious: Yes (Other)
  Sender: FDA-Public Use
  Company Number: US-PFIZER INC-2012043780

PATIENT
  Sex: Female
  Weight: 88.435 kg

DRUGS (4)
  1. UNITHROID [Concomitant]
     Indication: THYROID DISORDER
     Dosage: 125 UG, DAILY
  2. CHANTIX [Suspect]
     Dosage: UNK
     Route: 048
     Dates: end: 20120218
  3. CELEXA [Concomitant]
     Indication: ANXIETY
     Dosage: 10 MG, DAILY
  4. CHANTIX [Suspect]
     Indication: SMOKING CESSATION THERAPY
     Dosage: 0.5 MG, DAILY
     Route: 048
     Dates: start: 20111231

REACTIONS (4)
  - EMOTIONAL DISORDER [None]
  - FEELING ABNORMAL [None]
  - SUICIDAL IDEATION [None]
  - ANGER [None]
